FAERS Safety Report 4497988-X (Version None)
Quarter: 2004Q4

REPORT INFORMATION
  Report Type: 
  Country: None (occurrence: None)
  Receive Date: 20041109
  Receipt Date: 20041109
  Transmission Date: 20050328
  Serious: Yes (Hospitalization)
  Sender: FDA-Public Use
  Company Number: None

PATIENT
  Age: 71 Year
  Sex: Male
  Weight: 84.8226 kg

DRUGS (14)
  1. WARFARIN SODIUM [Suspect]
     Indication: CEREBROVASCULAR ACCIDENT
     Dosage: 5 MG EVERY DAY ORAL
     Route: 048
     Dates: start: 20040817, end: 20040904
  2. CLOPIDOGREL 75 MG BRISTOL-MYERS SQUIBB [Suspect]
     Indication: CEREBROVASCULAR ACCIDENT
     Dosage: 75 MG EVERY DAY ORAL
     Route: 048
     Dates: start: 20040817, end: 20040904
  3. ACETAMINOPHEN [Concomitant]
  4. INSULIN NOVOLIN [Concomitant]
  5. LEVOTHYROXINE SODIUM [Concomitant]
  6. LISINOPRIL [Concomitant]
  7. OMEPRAZOLE [Concomitant]
  8. PAROXETINE HCL [Concomitant]
  9. DILANTIN [Concomitant]
  10. POTASSIUM CHLORIDE [Concomitant]
  11. SIMVASTATIN [Concomitant]
  12. SPIRONOLACTONE [Concomitant]
  13. METOPROLOL SUCCINATE [Concomitant]
  14. METHYLPHENIDATE HCL [Concomitant]

REACTIONS (6)
  - BALANITIS [None]
  - CLOSTRIDIAL INFECTION [None]
  - DIARRHOEA [None]
  - FAECAL OCCULT BLOOD POSITIVE [None]
  - INTERNATIONAL NORMALISED RATIO INCREASED [None]
  - TINEA CRURIS [None]
